FAERS Safety Report 13861791 (Version 1)
Quarter: 2017Q3

REPORT INFORMATION
  Report Type: Spontaneous
  Country: PL (occurrence: PL)
  Receive Date: 20170811
  Receipt Date: 20170811
  Transmission Date: 20171127
  Serious: Yes (Hospitalization)
  Sender: FDA-Public Use
  Company Number: PL-ABBVIE-17P-129-2068022-00

PATIENT
  Age: 36 Year
  Sex: Male

DRUGS (3)
  1. VIEKIRAX [Suspect]
     Active Substance: OMBITASVIR\PARITAPREVIR\RITONAVIR
     Indication: HEPATITIS C
     Route: 048
     Dates: start: 20160812, end: 201608
  2. MODERIBA [Suspect]
     Active Substance: RIBAVIRIN
     Indication: HEPATITIS C
     Route: 048
     Dates: start: 20160812, end: 201608
  3. EXVIERA [Suspect]
     Active Substance: DASABUVIR
     Indication: HEPATITIS C
     Route: 048
     Dates: start: 20160812, end: 201608

REACTIONS (16)
  - Abdominal pain [Unknown]
  - Yellow skin [Unknown]
  - Blood creatinine abnormal [Unknown]
  - Procalcitonin abnormal [Unknown]
  - Blood potassium abnormal [Unknown]
  - Peritonitis [Recovered/Resolved]
  - Osteolysis [Unknown]
  - Pyrexia [Unknown]
  - Dyspnoea [Unknown]
  - Hyperalbuminaemia [Unknown]
  - Escherichia bacteraemia [Unknown]
  - Diarrhoea [Unknown]
  - C-reactive protein abnormal [Unknown]
  - Oedema [Unknown]
  - Anaemia [Unknown]
  - Blood bilirubin increased [Recovered/Resolved]

NARRATIVE: CASE EVENT DATE: 20160821
